FAERS Safety Report 24369098 (Version 3)
Quarter: 2024Q4

REPORT INFORMATION
  Report Type: Spontaneous
  Country: DE (occurrence: DE)
  Receive Date: 20240927
  Receipt Date: 20241022
  Transmission Date: 20250114
  Serious: Yes (Hospitalization, Other)
  Sender: NOVO NORDISK
  Company Number: DE-NOVOPROD-1286437

PATIENT
  Age: 68 Year
  Sex: Male

DRUGS (1)
  1. OZEMPIC [Suspect]
     Active Substance: SEMAGLUTIDE
     Indication: Type 2 diabetes mellitus
     Dosage: UNK

REACTIONS (13)
  - Sepsis [Unknown]
  - Renal failure [Unknown]
  - Unresponsive to stimuli [Unknown]
  - Pancreatic failure [Unknown]
  - Thrombocytopenia [Unknown]
  - Atrial fibrillation [Unknown]
  - White blood cell count increased [Unknown]
  - Varices oesophageal [Unknown]
  - Generalised oedema [Unknown]
  - Vitamin D deficiency [Unknown]
  - Folate deficiency [Unknown]
  - Gastritis [Unknown]
  - Drug hypersensitivity [Unknown]

NARRATIVE: CASE EVENT DATE: 20240811
